FAERS Safety Report 6644433-1 (Version None)
Quarter: 2010Q1

REPORT INFORMATION
  Report Type: 
  Country: None (occurrence: None)
  Receive Date: 20100322
  Receipt Date: 20100316
  Transmission Date: 20100710
  Serious: Yes (Death)
  Sender: FDA-Public Use
  Company Number: DE-ROCHE-691018

PATIENT
  Sex: Female
  Weight: 69 kg

DRUGS (8)
  1. CAPECITABINE [Suspect]
     Dosage: LAST DOSE PRIOR TO SAE: 10 MAR 2010
     Route: 065
     Dates: start: 20100225
  2. BEVACIZUMAB [Suspect]
     Dosage: 7.5 MG/ KG; LAST DOSE PRIOR TO SAE: 25 FEB 2010
     Route: 042
     Dates: start: 20100225
  3. OXALIPLATIN [Suspect]
     Dosage: FREQUENCY REPORTED AS: D1 AND 8 EVERY 21
     Route: 042
     Dates: start: 20100225
  4. BAYMYCARD [Concomitant]
  5. CANDESARTAN CILEXETIL [Concomitant]
  6. SIMVASTATIN [Concomitant]
  7. SOTAHEXAL [Concomitant]
  8. RASILEZ [Concomitant]

REACTIONS (3)
  - ASTHENIA [None]
  - DIARRHOEA [None]
  - PULMONARY EMBOLISM [None]
